FAERS Safety Report 8489197-4 (Version None)
Quarter: 2012Q3

REPORT INFORMATION
  Report Type: 
  Country: None (occurrence: None)
  Receive Date: 20120705
  Receipt Date: 20120626
  Transmission Date: 20120928
  Serious: Yes (Other)
  Sender: FDA-Public Use
  Company Number: JP-VERTEX PHARMACEUTICALS INC.-AE-2012-007236

PATIENT
  Age: 66 Year
  Sex: Male

DRUGS (20)
  1. REBETOL [Concomitant]
     Indication: HEPATITIS C
     Route: 048
     Dates: start: 20120312, end: 20120415
  2. REBETOL [Concomitant]
     Route: 048
     Dates: start: 20120416
  3. PEG-INTRON [Concomitant]
     Route: 058
     Dates: start: 20120312, end: 20120501
  4. ZOLPIDEM [Concomitant]
     Route: 048
     Dates: start: 20120604
  5. TELAVIC (TELAPREVIR) [Suspect]
     Route: 048
     Dates: start: 20120501, end: 20120527
  6. PEG-INTRON [Concomitant]
     Indication: HEPATITIS C
     Route: 058
     Dates: start: 20120312
  7. MAGNESIUM HYDROXIDE TAB [Concomitant]
     Route: 048
     Dates: start: 20120416, end: 20120430
  8. MAGNESIUM HYDROXIDE TAB [Concomitant]
     Route: 048
     Dates: start: 20120501, end: 20120513
  9. URSO 250 [Concomitant]
     Route: 048
     Dates: end: 20120401
  10. BIO-THREE [Concomitant]
     Route: 048
     Dates: start: 20120501
  11. LANSOPRAZOLE [Concomitant]
     Route: 048
     Dates: start: 20120514
  12. FLUOROMETHOLONE [Concomitant]
     Route: 047
     Dates: start: 20120315, end: 20120327
  13. PEG-INTRON [Concomitant]
     Route: 058
     Dates: start: 20120507
  14. ACTONEL [Concomitant]
     Route: 048
  15. TELAVIC (TELAPREVIR) [Suspect]
     Indication: HEPATITIS C
     Route: 048
     Dates: start: 20120312, end: 20120430
  16. ASPARA-CA [Concomitant]
     Route: 048
  17. REBAMIPIDE [Concomitant]
     Route: 048
  18. SP TROCHES [Concomitant]
     Dates: start: 20120416
  19. MAGLAX [Concomitant]
     Route: 048
     Dates: start: 20120316, end: 20120331
  20. DEPAS [Concomitant]
     Route: 048

REACTIONS (2)
  - WHITE BLOOD CELL COUNT DECREASED [None]
  - ERYTHEMA MULTIFORME [None]
